FAERS Safety Report 10494297 (Version 1)
Quarter: 2014Q4

REPORT INFORMATION
  Report Type: Spontaneous
  Country: US (occurrence: None)
  Receive Date: 20141001
  Receipt Date: 20141001
  Transmission Date: 20150528
  Serious: Yes (Hospitalization, Other)
  Sender: FDA-Public Use
  Company Number: US-ZYDUS-005054

PATIENT
  Age: 23 Year
  Sex: Female

DRUGS (2)
  1. LEVETIRACETAM (LEVETIRACETAM) [Suspect]
     Active Substance: LEVETIRACETAM
     Indication: GENERALISED TONIC-CLONIC SEIZURE
  2. LORAZEPAM. [Concomitant]
     Active Substance: LORAZEPAM

REACTIONS (4)
  - Myalgia [None]
  - Acute kidney injury [None]
  - Decreased appetite [None]
  - Blood urine present [None]
